FAERS Safety Report 6161002-0 (Version None)
Quarter: 2009Q2

REPORT INFORMATION
  Report Type: 
  Country: None (occurrence: None)
  Receive Date: 20090420
  Receipt Date: 20090408
  Transmission Date: 20091009
  Serious: Yes (Death, Life-Threatening, Hospitalization, Other)
  Sender: FDA-Public Use
  Company Number: CA-PFIZER INC-2008028900

PATIENT

DRUGS (27)
  1. VORICONAZOLE [Suspect]
     Indication: PROPHYLAXIS
     Dosage: 654 MG, 2X/DAY
     Route: 042
     Dates: start: 20071019, end: 20071020
  2. VORICONAZOLE [Suspect]
     Dosage: 436 MG, 2X/DAY
     Route: 042
     Dates: start: 20071020, end: 20071021
  3. VORICONAZOLE [Suspect]
     Dosage: 200 MG, 2X/DAY
     Route: 048
     Dates: start: 20071021, end: 20071031
  4. VORICONAZOLE [Suspect]
     Dosage: 416 MG, 2X/DAY
     Route: 042
     Dates: start: 20071101, end: 20071103
  5. VORICONAZOLE [Suspect]
     Dosage: 200 MG, 2X/DAY
     Route: 048
     Dates: start: 20071104, end: 20071105
  6. VORICONAZOLE [Suspect]
     Dosage: 200 MG, 2X/DAY
     Route: 048
     Dates: start: 20071116, end: 20080402
  7. MYCOPHENOLATE MOFETIL [Concomitant]
     Route: 048
     Dates: start: 20071127
  8. TACROLIMUS [Concomitant]
     Route: 048
     Dates: start: 20071016
  9. RABEPRAZOLE SODIUM [Concomitant]
     Route: 048
     Dates: start: 20071123
  10. ALL OTHER THERAPEUTIC PRODUCTS [Concomitant]
     Route: 048
     Dates: start: 20080117
  11. NIFEDIPINE [Concomitant]
     Route: 048
     Dates: start: 20071119
  12. DEXAMETHASONE TAB [Concomitant]
     Route: 048
     Dates: start: 20080310
  13. MAGNESIUM SULFATE [Concomitant]
     Route: 042
     Dates: start: 20080214, end: 20080328
  14. FOLIC ACID [Concomitant]
     Route: 048
     Dates: start: 20080320
  15. PREDNISOLONE ACETATE [Concomitant]
     Dates: start: 20071129
  16. METOPROLOL SUCCINATE [Concomitant]
     Route: 048
     Dates: start: 20071212
  17. ALL OTHER THERAPEUTIC PRODUCTS [Concomitant]
     Dates: start: 20071129
  18. ALL OTHER THERAPEUTIC PRODUCTS [Concomitant]
     Route: 058
     Dates: start: 20071120
  19. INSULATARD NPH HUMAN [Concomitant]
     Route: 058
     Dates: start: 20071120
  20. CALCIUM CARBONATE [Concomitant]
     Route: 048
     Dates: start: 20080309
  21. DAPSONE [Concomitant]
     Route: 048
     Dates: start: 20071226
  22. VENTOLIN [Concomitant]
     Dates: start: 20080114
  23. ATROVENT [Concomitant]
     Dates: start: 20080219
  24. ATIVAN [Concomitant]
     Route: 048
     Dates: start: 20071119
  25. VITAMIN D [Concomitant]
     Route: 048
     Dates: start: 20080308
  26. AZITHROMYCIN [Concomitant]
     Route: 048
     Dates: start: 20080307
  27. ALL OTHER THERAPEUTIC PRODUCTS [Concomitant]
     Dates: start: 20080306

REACTIONS (6)
  - GRAFT VERSUS HOST DISEASE [None]
  - HAEMORRHAGE INTRACRANIAL [None]
  - KLEBSIELLA INFECTION [None]
  - MUSCULAR WEAKNESS [None]
  - PANCYTOPENIA [None]
  - PNEUMONIA [None]
